FAERS Safety Report 19598766 (Version 1)
Quarter: 2021Q3

REPORT INFORMATION
  Report Type: Spontaneous
  Country: US (occurrence: US)
  Receive Date: 20210722
  Receipt Date: 20210722
  Transmission Date: 20211014
  Serious: Yes (Other)
  Sender: FDA-Public Use
  Company Number: None

PATIENT
  Sex: Male
  Weight: 76.2 kg

DRUGS (11)
  1. OXYCODONE [Concomitant]
     Active Substance: OXYCODONE
  2. ONDANSETRON [Concomitant]
     Active Substance: ONDANSETRON
  3. PREDNISONE. [Concomitant]
     Active Substance: PREDNISONE
  4. ELIGARD [Concomitant]
     Active Substance: LEUPROLIDE ACETATE
  5. ABIRATERONE. [Concomitant]
     Active Substance: ABIRATERONE ACETATE
  6. ERLEADA [Suspect]
     Active Substance: APALUTAMIDE
     Indication: PROSTATE CANCER
     Route: 048
  7. OXYCODONE AND ACETAMINOPHEN [Concomitant]
     Active Substance: ACETAMINOPHEN\OXYCODONE HYDROCHLORIDE
  8. DOCUSATE [Concomitant]
     Active Substance: DOCUSATE
  9. OXYCONTIN [Concomitant]
     Active Substance: OXYCODONE HYDROCHLORIDE
  10. ASPERCREME WITH LIDOCAINE [Concomitant]
     Active Substance: LIDOCAINE
  11. IBUPROFEN. [Concomitant]
     Active Substance: IBUPROFEN

REACTIONS (1)
  - Disease progression [None]
